FAERS Safety Report 19888895 (Version 3)
Quarter: 2023Q2

REPORT INFORMATION
  Report Type: Other
  Country: US (occurrence: None)
  Receive Date: 20210927
  Receipt Date: 20230523
  Transmission Date: 20230721
  Serious: Yes (Other)
  Sender: FDA-Public Use
  Company Number: US-ROCHE-2912099

PATIENT
  Age: 72 Year
  Sex: Female

DRUGS (1)
  1. ROZLYTREK [Suspect]
     Active Substance: ENTRECTINIB
     Indication: Salivary gland cancer
     Dosage: TAKE 1 CAPSULE BY MOUTH EVERY DAY
     Route: 048

REACTIONS (9)
  - Speech disorder [Unknown]
  - Osteomyelitis [Unknown]
  - Blindness [Unknown]
  - Bone pain [Unknown]
  - Oral disorder [Unknown]
  - Corneal abrasion [Unknown]
  - Hypoaesthesia eye [Unknown]
  - Off label use [Unknown]
  - Neoplasm progression [Unknown]
